FAERS Safety Report 15057997 (Version 3)
Quarter: 2022Q1

REPORT INFORMATION
  Report Type: Spontaneous
  Country: US (occurrence: US)
  Receive Date: 20180625
  Receipt Date: 20220128
  Transmission Date: 20220423
  Serious: No
  Sender: FDA-Public Use
  Company Number: US-PFIZER INC-2018250560

PATIENT
  Age: 75 Year
  Sex: Female
  Weight: 58.05 kg

DRUGS (4)
  1. XELJANZ XR [Interacting]
     Active Substance: TOFACITINIB CITRATE
     Indication: Rheumatoid arthritis
     Dosage: 11 MG, 1X/DAY
     Dates: start: 20180614
  2. XELJANZ XR [Interacting]
     Active Substance: TOFACITINIB CITRATE
     Dosage: 11 MG
  3. GABAPENTIN [Interacting]
     Active Substance: GABAPENTIN
     Indication: Nerve injury
     Dosage: 300 MG, UNK (3 TO 6 DAILY)
     Dates: start: 201511
  4. TYLENOL [Concomitant]
     Active Substance: ACETAMINOPHEN
     Indication: Rheumatoid arthritis
     Dosage: UNK

REACTIONS (2)
  - Balance disorder [Recovering/Resolving]
  - Drug interaction [Unknown]

NARRATIVE: CASE EVENT DATE: 20180618
